FAERS Safety Report 6157918-1 (Version None)
Quarter: 2009Q2

REPORT INFORMATION
  Report Type: 
  Country: None (occurrence: None)
  Receive Date: 20090417
  Receipt Date: 20090407
  Transmission Date: 20091009
  Serious: Yes (Other)
  Sender: FDA-Public Use
  Company Number: US-SANOFI-SYNTHELABO-A03200901157

PATIENT
  Sex: Female

DRUGS (2)
  1. AMBIEN [Suspect]
     Indication: SLEEP DISORDER
     Route: 048
     Dates: start: 20090101, end: 20090310
  2. AMBIEN [Suspect]
     Route: 048
     Dates: start: 20090101, end: 20090310

REACTIONS (4)
  - GAIT DISTURBANCE [None]
  - MOBILITY DECREASED [None]
  - PARAPARESIS [None]
  - THERAPEUTIC RESPONSE INCREASED [None]
